FAERS Safety Report 21772111 (Version 1)
Quarter: 2022Q4

REPORT INFORMATION
  Report Type: Other
  Country: US (occurrence: None)
  Receive Date: 20221223
  Receipt Date: 20221223
  Transmission Date: 20230112
  Serious: Yes (Hospitalization)
  Sender: FDA-Public Use
  Company Number: US-ROCHE-3245447

PATIENT
  Age: 77 Year
  Sex: Female
  Weight: 63.106 kg

DRUGS (3)
  1. ACTEMRA [Suspect]
     Active Substance: TOCILIZUMAB
     Indication: Rheumatoid arthritis
     Dosage: 162MG/0.9ML
     Route: 058
     Dates: start: 20200325
  2. ACTEMRA [Suspect]
     Active Substance: TOCILIZUMAB
  3. ACTEMRA [Suspect]
     Active Substance: TOCILIZUMAB

REACTIONS (2)
  - Abdominal pain [Recovered/Resolved]
  - Diverticulitis [Recovered/Resolved]

NARRATIVE: CASE EVENT DATE: 20221108
